FAERS Safety Report 7759273-X (Version None)
Quarter: 2011Q3

REPORT INFORMATION
  Report Type: 
  Country: None (occurrence: None)
  Receive Date: 20110915
  Receipt Date: 20110831
  Transmission Date: 20111222
  Serious: Yes (Hospitalization)
  Sender: FDA-Public Use
  Company Number: 1000021902

PATIENT
  Age: 36 Year
  Sex: Female

DRUGS (19)
  1. MEROPENEM [Suspect]
     Indication: PYREXIA
     Dosage: 3 GM (1 GM, 3 IN 1 D), INTRAVENOUS
     Route: 042
     Dates: start: 20110407, end: 20110414
  2. BUSCOPAN (HYOSCINE BUTYLBROMIDE) (HYOSCINE BUTYLBROMIDE) [Concomitant]
  3. PRIMOLUT N (NORETHISTERONE) (NORETHISTERONE) [Concomitant]
  4. CYTOSAR-U [Suspect]
     Indication: MYELODYSPLASTIC SYNDROME
     Dosage: 2000 MG/M2 (1000 MG/M2, 2 IN 1 D), INTRAVENOUS (NOT OTHERWISE SPECIFIED)
     Route: 042
     Dates: start: 20110329, end: 20110403
  5. CYTOSAR-U [Suspect]
     Indication: MYELODYSPLASTIC SYNDROME
     Dosage: 2000 MG/M2 (1000 MG/M2, 2 IN 1 D), INTRAVENOUS (NOT OTHERWISE SPECIFIED)
     Route: 042
     Dates: start: 20110310, end: 20110315
  6. IDARUBICIN HYDROCHLORIDE [Suspect]
     Indication: MYELODYSPLASTIC SYNDROME
     Dosage: 12 M/M2 (12 MG/M2, 1 IN 1 D), INTRAVENOUS (NOT OTHERWISE SPECIFIED)
     Route: 042
     Dates: start: 20110310, end: 20110312
  7. DEXAMETHASON (DEXAMETHASONE) (DEXAMETHASONE) [Concomitant]
  8. FAMVIR [Suspect]
     Indication: PYREXIA
     Dosage: 1000 MG (500 MG, 2 IN 1 D), ORAL
     Route: 048
     Dates: start: 20110405, end: 20110412
  9. VFEND [Concomitant]
  10. FLAGYL (METRONIDAZOLE) (METRONIDAZOLE) [Concomitant]
  11. AMSIDYL [Suspect]
     Indication: MYELODYSPLASTIC SYNDROME
     Dosage: 120 MG/M2 (120 MG/M2, 1 IN 1 D)
     Dates: start: 20110401, end: 20110403
  12. CANCIDAS [Suspect]
     Indication: PYREXIA
     Dosage: 70 MG (70 MG, 1 IN 1 D), ORAL
     Route: 048
     Dates: start: 20110407, end: 20110412
  13. PERFALGAN (PARACETAMOL) (PARACETAMOL) [Concomitant]
  14. TAZOBAC (PIP/TAZO)-(PIP/TAZO) [Concomitant]
  15. NEXIUM (ESOMERAZOLE MAGNESIUM) (TABLETS) (ESOMEPRAZOLE MAGNESIUM) [Concomitant]
  16. STILNOX (ZOLPIDEM TARTRATE) (ZOLPIDEM TARTRATE) [Concomitant]
  17. MOTILIUM (DOMPERIDONE) (TABLETS) (DOMPERIDONE) [Concomitant]
  18. PASPERTIN (METOCLOPRAMIDE HYDROCHLORIDE) (TABLETS) (METOCLOPRAMIDE HYD [Concomitant]
  19. ESCITALOPRAM [Suspect]
     Indication: BIPOLAR DISORDER
     Dosage: 10 MG (10 MG, 1 IN 1 D), ORAL
     Route: 048
     Dates: start: 20110308, end: 20110421

REACTIONS (22)
  - CONFUSIONAL STATE [None]
  - TREMOR [None]
  - SLEEP DISORDER [None]
  - HYPERREFLEXIA [None]
  - COORDINATION ABNORMAL [None]
  - NERVOUS SYSTEM DISORDER [None]
  - APHASIA [None]
  - NAUSEA [None]
  - CYTARABINE SYNDROME [None]
  - DIZZINESS [None]
  - VOMITING [None]
  - SEROTONIN SYNDROME [None]
  - TOXICITY TO VARIOUS AGENTS [None]
  - RASH [None]
  - FEBRILE NEUTROPENIA [None]
  - HEPATIC ENZYME INCREASED [None]
  - MYALGIA [None]
  - APRAXIA [None]
  - RHABDOMYOLYSIS [None]
  - HEPATOCELLULAR INJURY [None]
  - COAGULOPATHY [None]
  - INTERNATIONAL NORMALISED RATIO DECREASED [None]
